FAERS Safety Report 17668705 (Version 2)
Quarter: 2023Q4

REPORT INFORMATION
  Report Type: Spontaneous
  Country: ES (occurrence: ES)
  Receive Date: 20200415
  Receipt Date: 20231204
  Transmission Date: 20240109
  Serious: Yes (Hospitalization)
  Sender: FDA-Public Use
  Company Number: ES-AEMPS-616883

PATIENT
  Age: 69 Year
  Sex: Female
  Weight: 57 kg

DRUGS (3)
  1. ENALAPRIL [Interacting]
     Active Substance: ENALAPRIL
     Indication: Ventricular dysfunction
     Dosage: 5 MILLIGRAM, TWO TIMES A DAY
     Route: 048
     Dates: start: 20200203, end: 20200227
  2. EPLERENONE [Interacting]
     Active Substance: EPLERENONE
     Indication: Ventricular dysfunction
     Dosage: 50 MILLIGRAM, ONCE A DAY
     Route: 048
     Dates: start: 20200203, end: 20200227
  3. FUROSEMIDE [Interacting]
     Active Substance: FUROSEMIDE
     Indication: Ventricular dysfunction
     Dosage: UNK
     Route: 048
     Dates: start: 20200203

REACTIONS (2)
  - Hyponatraemia [Recovered/Resolved]
  - Drug interaction [Unknown]

NARRATIVE: CASE EVENT DATE: 20200227
